FAERS Safety Report 12020218 (Version 2)
Quarter: 2016Q1

REPORT INFORMATION
  Report Type: Spontaneous
  Country: JP (occurrence: JP)
  Receive Date: 20160206
  Receipt Date: 20160315
  Transmission Date: 20160526
  Serious: Yes (Other)
  Sender: FDA-Public Use
  Company Number: JP-AMGEN-JPNSP2016013472

PATIENT
  Age: 85 Year
  Sex: Female

DRUGS (7)
  1. BISOPROLOL FUMARATE. [Concomitant]
     Active Substance: BISOPROLOL FUMARATE
     Dosage: 1 DF, QD, MORNING
     Route: 065
     Dates: end: 201407
  2. PRALIA [Suspect]
     Active Substance: DENOSUMAB
     Indication: PRODUCT USED FOR UNKNOWN INDICATION
     Dosage: 60 MG, Q6MO
     Route: 058
     Dates: start: 201511
  3. GLACTIV [Concomitant]
     Active Substance: SITAGLIPTIN
     Dosage: 1 DF, QD, MORNING
     Route: 065
     Dates: end: 201407
  4. EDIROL [Concomitant]
     Active Substance: ELDECALCITOL
     Dosage: UNK MOL, UNK
  5. BONOTEO [Concomitant]
     Active Substance: MINODRONIC ACID
     Indication: OSTEOPOROSIS
     Dosage: UNK, QWK
     Route: 048
     Dates: start: 20141226, end: 201509
  6. UNISIA [Concomitant]
     Active Substance: AMLODIPINE BESYLATE\CANDESARTAN CILEXETIL
     Dosage: 1 DF, QD, MORNING
     Route: 065
  7. GLIMICRON [Concomitant]
     Active Substance: GLICLAZIDE
     Dosage: 1 DF, QD, MORNING
     Route: 065

REACTIONS (1)
  - Osteonecrosis of jaw [Recovered/Resolved]

NARRATIVE: CASE EVENT DATE: 20151221
